FAERS Safety Report 21088761 (Version 1)
Quarter: 2022Q3

REPORT INFORMATION
  Report Type: Spontaneous
  Country: CN (occurrence: CN)
  Receive Date: 20220715
  Receipt Date: 20220715
  Transmission Date: 20221027
  Serious: Yes (Other)
  Sender: FDA-Public Use
  Company Number: CN-PFIZER INC-PV202200022375

PATIENT
  Age: 9 Year
  Sex: Female
  Weight: 35 kg

DRUGS (2)
  1. AZITHROMYCIN [Suspect]
     Active Substance: AZITHROMYCIN
     Indication: Cough
     Dosage: 1 DF, 2X/DAY
     Route: 048
     Dates: start: 20220701, end: 20220702
  2. AMBROXOL HYDROCHLORIDE AND CLENBUTEROL HYDROCHLORIDE [Concomitant]
     Indication: Cough
     Dosage: 15 ML, 2X/DAY
     Route: 048
     Dates: start: 20220701, end: 20220702

REACTIONS (4)
  - Vomiting [Recovered/Resolved]
  - Abdominal pain upper [Recovered/Resolved]
  - Feeding disorder [Recovered/Resolved]
  - Off label use [Unknown]

NARRATIVE: CASE EVENT DATE: 20220701
